FAERS Safety Report 5921990-1 (Version None)
Quarter: 2008Q4

REPORT INFORMATION
  Report Type: 
  Country: None (occurrence: None)
  Receive Date: 20081017
  Receipt Date: 20081013
  Transmission Date: 20090506
  Serious: Yes (Other)
  Sender: FDA-Public Use
  Company Number: US-ASTRAZENECA-2008UW22572

PATIENT
  Age: 66 Year
  Sex: Female
  Weight: 63.5 kg

DRUGS (6)
  1. CRESTOR [Suspect]
     Indication: BLOOD CHOLESTEROL INCREASED
     Route: 048
     Dates: start: 20080908
  2. DIOVAN [Concomitant]
     Dosage: 160 MG
  3. RIFAMPIN [Concomitant]
  4. ETHAMBUTOL HYDROCHLORIDE [Concomitant]
  5. CLARITHROMYCIN [Concomitant]
  6. ZOFANEX [Concomitant]

REACTIONS (6)
  - ARTHRALGIA [None]
  - JOINT SWELLING [None]
  - LIP SWELLING [None]
  - NAUSEA [None]
  - OEDEMA PERIPHERAL [None]
  - ONYCHOMYCOSIS [None]
